FAERS Safety Report 8361359-6 (Version None)
Quarter: 2012Q2

REPORT INFORMATION
  Report Type: 
  Country: None (occurrence: None)
  Receive Date: 20120515
  Receipt Date: 20120503
  Transmission Date: 20120825
  Serious: Yes (Hospitalization, Other)
  Sender: FDA-Public Use
  Company Number: US-ACTELION-A-NJ2012-61112

PATIENT

DRUGS (5)
  1. OXYGEN [Concomitant]
  2. REVATIO [Concomitant]
  3. ASPIRIN [Concomitant]
  4. TRACLEER [Suspect]
     Indication: PULMONARY ARTERIAL HYPERTENSION
     Dosage: 125 MG, BID
     Route: 048
     Dates: start: 20111012
  5. CALCIUM CHANNEL BLOCKERS [Concomitant]

REACTIONS (9)
  - SKELETAL INJURY [None]
  - COUGH [None]
  - DIZZINESS [None]
  - BRONCHOSPASM [None]
  - DYSPNOEA EXERTIONAL [None]
  - DYSPNOEA [None]
  - RESPIRATORY TRACT CONGESTION [None]
  - VIRAL INFECTION [None]
  - BRONCHITIS [None]
